FAERS Safety Report 18683505 (Version 1)
Quarter: 2020Q4

REPORT INFORMATION
  Report Type: Spontaneous
  Country: US (occurrence: US)
  Receive Date: 20201230
  Receipt Date: 20201230
  Transmission Date: 20210114
  Serious: Yes (Other)
  Sender: FDA-Public Use
  Company Number: None

PATIENT
  Sex: Female

DRUGS (3)
  1. OMNIPOD INSULIN PUMP [Suspect]
     Active Substance: DEVICE
     Indication: TYPE 1 DIABETES MELLITUS
  2. FIASP [Concomitant]
     Active Substance: INSULIN ASPART
     Dates: start: 20200122
  3. FIASP [Suspect]
     Active Substance: INSULIN ASPART

REACTIONS (9)
  - Medical device site cellulitis [None]
  - Impaired healing [None]
  - Granuloma [None]
  - Acid fast bacilli infection [None]
  - Skin mass [None]
  - Pyrexia [None]
  - Headache [None]
  - Mycobacterium test positive [None]
  - Cellulitis [None]

NARRATIVE: CASE EVENT DATE: 20201014
